FAERS Safety Report 6357002-8 (Version None)
Quarter: 2009Q3

REPORT INFORMATION
  Report Type: 
  Country: None (occurrence: None)
  Receive Date: 20090915
  Receipt Date: 20081006
  Transmission Date: 20100115
  Serious: No
  Sender: FDA-Public Use
  Company Number: US-ABBOTT-08P-163-0479862-00

PATIENT
  Sex: Male
  Weight: 14.982 kg

DRUGS (3)
  1. DEPAKOTE [Suspect]
     Indication: CONVULSION
     Route: 048
     Dates: start: 20080601, end: 20081002
  2. DEPAKOTE [Suspect]
     Route: 048
     Dates: start: 20080601, end: 20081002
  3. POLY-VI-FLOR [Concomitant]
     Indication: ROUTINE HEALTH MAINTENANCE
     Route: 048

REACTIONS (1)
  - MEDICATION RESIDUE [None]
